FAERS Safety Report 18525394 (Version 4)
Quarter: 2021Q1

REPORT INFORMATION
  Report Type: Spontaneous
  Country: US (occurrence: US)
  Receive Date: 20201120
  Receipt Date: 20210201
  Transmission Date: 20210419
  Serious: Yes (Other)
  Sender: FDA-Public Use
  Company Number: US-ROCHE-2712962

PATIENT
  Sex: Female

DRUGS (1)
  1. EVRYSDI [Suspect]
     Active Substance: RISDIPLAM
     Indication: SPINAL MUSCULAR ATROPHY
     Dosage: 0.75 MG/1 ML
     Route: 048

REACTIONS (3)
  - Lung neoplasm malignant [Not Recovered/Not Resolved]
  - Product packaging quantity issue [Unknown]
  - Device difficult to use [Unknown]
